FAERS Safety Report 4642356-0 (Version None)
Quarter: 2005Q2

REPORT INFORMATION
  Report Type: 
  Country: None (occurrence: None)
  Receive Date: 20050420
  Receipt Date: 20050420
  Transmission Date: 20051028
  Serious: Yes (Hospitalization)
  Sender: FDA-Public Use
  Company Number: None

PATIENT
  Sex: Female
  Weight: 56.246 kg

DRUGS (4)
  1. BORTEZOMIB [Suspect]
     Indication: CERVIX CARCINOMA
     Dosage: 1.35  MG/M2  D1,4,8,1 1 Q21D  INTRAVENOUS
     Route: 042
     Dates: start: 20050314, end: 20050325
  2. IRINOTECAN HCL [Suspect]
     Dosage: 75 MG/M2   D1,8   Q21D   INTRAVENOUS
     Route: 042
     Dates: start: 20050314, end: 20050322
  3. OXYCONTIN [Concomitant]
  4. OXYCODONE [Concomitant]

REACTIONS (5)
  - CONFUSIONAL STATE [None]
  - FATIGUE [None]
  - HYPOKALAEMIA [None]
  - HYPONATRAEMIA [None]
  - THROMBOCYTOPENIA [None]
